FAERS Safety Report 12128246 (Version 1)
Quarter: 2016Q1

REPORT INFORMATION
  Report Type: Spontaneous
  Country: DK (occurrence: DK)
  Receive Date: 20160229
  Receipt Date: 20160229
  Transmission Date: 20160526
  Serious: Yes (Hospitalization)
  Sender: FDA-Public Use
  Company Number: DK-IPCA LABORATORIES LIMITED-IPC201602-000284

PATIENT
  Age: 44 Year
  Sex: Male

DRUGS (9)
  1. LIRAGLUTIDE [Concomitant]
     Active Substance: LIRAGLUTIDE
  2. INSULIN GLARGINE [Concomitant]
     Active Substance: INSULIN GLARGINE
     Indication: TYPE 2 DIABETES MELLITUS
     Route: 042
  3. METFORMIN HYDROCHLORIDE. [Suspect]
     Active Substance: METFORMIN HYDROCHLORIDE
     Indication: TYPE 2 DIABETES MELLITUS
  4. METFORMIN HYDROCHLORIDE. [Suspect]
     Active Substance: METFORMIN HYDROCHLORIDE
  5. INSULIN GLARGINE [Concomitant]
     Active Substance: INSULIN GLARGINE
     Route: 042
  6. DAPAGLIFLOZIN [Suspect]
     Active Substance: DAPAGLIFLOZIN
  7. LIRAGLUTIDE [Concomitant]
     Active Substance: LIRAGLUTIDE
  8. ENALAPRIL [Concomitant]
     Active Substance: ENALAPRIL
     Indication: HYPERTENSION
  9. INSULIN GLARGINE [Concomitant]
     Active Substance: INSULIN GLARGINE
     Route: 042

REACTIONS (3)
  - Lactic acidosis [Recovered/Resolved]
  - Ketoacidosis [Recovered/Resolved]
  - Dehydration [Recovered/Resolved]
